FAERS Safety Report 8112454-8 (Version None)
Quarter: 2012Q1

REPORT INFORMATION
  Report Type: 
  Country: None (occurrence: None)
  Receive Date: 20120203
  Receipt Date: 20120201
  Transmission Date: 20120608
  Serious: Yes (Other)
  Sender: FDA-Public Use
  Company Number: GB-ROCHE-798199

PATIENT
  Sex: Female

DRUGS (11)
  1. AQUEOUS CREAM [Concomitant]
     Dosage: 1 APPLICATION
     Dates: start: 20111001
  2. VEMURAFENIB [Suspect]
     Indication: MALIGNANT MELANOMA
     Dosage: LAST DOSE PRIOR TO SAE: 17 JAN 2012
     Route: 048
     Dates: start: 20100907, end: 20110629
  3. PAROXETINE [Concomitant]
  4. LOPERAMIDE HCL [Concomitant]
  5. HYDROCORTISONE [Concomitant]
     Dosage: 1 APPLICATION
     Dates: start: 20111001
  6. DIAZEPAM [Concomitant]
  7. OMEGA-3 TRIGLYCERIDES [Concomitant]
     Dates: start: 20050101, end: 20110608
  8. VEMURAFENIB [Suspect]
     Route: 048
  9. ACETAMINOPHEN AND CODEINE PHOSPHATE [Concomitant]
  10. AMITRIPTYLINE HCL [Concomitant]
  11. ORAMORPH SR [Concomitant]

REACTIONS (1)
  - OSTEOMYELITIS [None]
